FAERS Safety Report 22297229 (Version 1)
Quarter: 2023Q2

REPORT INFORMATION
  Report Type: Other
  Country: PT (occurrence: PT)
  Receive Date: 20230509
  Receipt Date: 20230509
  Transmission Date: 20230721
  Serious: Yes (Other)
  Sender: FDA-Public Use
  Company Number: PT-CELLTRION INC.-2023PT009441

PATIENT

DRUGS (1)
  1. HERZUMA [Suspect]
     Active Substance: TRASTUZUMAB-PKRB
     Indication: Inflammatory carcinoma of the breast
     Dosage: 456 MG, 1 CYCLE
     Route: 042
     Dates: start: 20230124

REACTIONS (4)
  - Balance disorder [Unknown]
  - Mucosal inflammation [Unknown]
  - Paraesthesia [Unknown]
  - Muscular weakness [Unknown]

NARRATIVE: CASE EVENT DATE: 20230308
